FAERS Safety Report 8179323-9 (Version None)
Quarter: 2012Q1

REPORT INFORMATION
  Report Type: 
  Country: None (occurrence: None)
  Receive Date: 20120229
  Receipt Date: 20120229
  Transmission Date: 20120608
  Serious: No
  Sender: FDA-Public Use
  Company Number: None

PATIENT
  Sex: Female
  Weight: 56.246 kg

DRUGS (2)
  1. ACTONEL [Suspect]
     Indication: OSTEOPOROSIS
     Dosage: 35 MGM 1 X WK PO
     Route: 048
     Dates: start: 20110101
  2. ACTONEL [Suspect]
     Indication: OSTEOPOROSIS
     Dosage: 35 MGM 1 X WK PO
     Route: 048
     Dates: start: 20040101

REACTIONS (2)
  - TOOTH FRACTURE [None]
  - CHRONIC MYELOID LEUKAEMIA [None]
